FAERS Safety Report 7725580-X (Version None)
Quarter: 2011Q3

REPORT INFORMATION
  Report Type: 
  Country: None (occurrence: None)
  Receive Date: 20110902
  Receipt Date: 20110822
  Transmission Date: 20111222
  Serious: Yes (Hospitalization, Other)
  Sender: FDA-Public Use
  Company Number: US-US-EMD SERONO, INC.-7043359

PATIENT
  Sex: Female
  Weight: 77 kg

DRUGS (8)
  1. HYDROCHLOROTHIAZIDE [Concomitant]
     Indication: BLOOD PRESSURE
  2. CALCIUM CARBONATE [Concomitant]
     Indication: MEDICAL DIET
  3. FOSAMAX [Concomitant]
     Indication: OSTEOPENIA
  4. COSTCO MULTIVITAMIN PACK-KIRKLAND [Concomitant]
     Indication: MEDICAL DIET
  5. VITAMIN D [Concomitant]
     Indication: MEDICAL DIET
  6. REBIF [Suspect]
     Indication: MULTIPLE SCLEROSIS
     Route: 058
     Dates: start: 20071219
  7. AMPYRA [Concomitant]
     Indication: GAIT DISTURBANCE
  8. FISH OIL [Concomitant]
     Indication: MEDICAL DIET

REACTIONS (6)
  - LOSS OF CONSCIOUSNESS [None]
  - HIP FRACTURE [None]
  - FALL [None]
  - BREAST CANCER [None]
  - IMPAIRED HEALING [None]
  - MULTIPLE SCLEROSIS RELAPSE [None]
